FAERS Safety Report 9637785 (Version 5)
Quarter: 2014Q1

REPORT INFORMATION
  Report Type: Spontaneous
  Country: JP (occurrence: JP)
  Receive Date: 20131022
  Receipt Date: 20140121
  Transmission Date: 20141002
  Serious: Yes (Other)
  Sender: FDA-Public Use
  Company Number: JP-ROCHE-1289872

PATIENT
  Age: 84 Year
  Sex: Female

DRUGS (6)
  1. BONVIVA [Suspect]
     Indication: OSTEOPOROSIS
     Route: 042
     Dates: start: 20131004, end: 20131004
  2. PERMAX [Concomitant]
     Indication: PARKINSON^S DISEASE
     Dosage: DOSAGE IS UNCERTAIN.
     Route: 048
  3. LYRICA [Concomitant]
     Dosage: DOSAGE IS UNCERTAIN.
     Route: 048
  4. FUROSEMIDE [Concomitant]
     Indication: HYPERTENSION
     Dosage: DOSAGE IS UNCERTAIN.
     Route: 048
  5. SPIRONOLACTONE [Concomitant]
     Indication: HYPERTENSION
     Dosage: DOSAGE IS UNCERTAIN.
     Route: 048
  6. NIFESLOW [Concomitant]
     Indication: HYPERTENSION
     Dosage: DOSAGE IS UNCERTAIN.
     Route: 048

REACTIONS (3)
  - Face oedema [Recovered/Resolved]
  - Local swelling [Recovering/Resolving]
  - Erythema [Recovering/Resolving]
